FAERS Safety Report 9793190 (Version 2)
Quarter: 2014Q1

REPORT INFORMATION
  Report Type: Report from Study
  Country: CA (occurrence: CA)
  Receive Date: 20140102
  Receipt Date: 20140123
  Transmission Date: 20141002
  Serious: Yes (Hospitalization, Other)
  Sender: FDA-Public Use
  Company Number: CA-ABBVIE-13P-028-1184492-00

PATIENT
  Sex: Female

DRUGS (1)
  1. HUMIRA [Suspect]
     Indication: CROHN^S DISEASE
     Route: 058
     Dates: start: 20120126, end: 2013

REACTIONS (4)
  - Asthenia [Unknown]
  - Abasia [Not Recovered/Not Resolved]
  - Sepsis [Unknown]
  - Nephrolithiasis [Unknown]
